FAERS Safety Report 9436280 (Version 2)
Quarter: 2013Q3

REPORT INFORMATION
  Report Type: Spontaneous
  Country: US (occurrence: US)
  Receive Date: 20130802
  Receipt Date: 20130916
  Transmission Date: 20140515
  Serious: Yes (Disabling)
  Sender: FDA-Public Use
  Company Number: US-009507513-1307USA016909

PATIENT
  Age: 74 Year
  Sex: Female

DRUGS (3)
  1. SAPHRIS [Suspect]
     Indication: BIPOLAR DISORDER
     Dosage: 10 MG, BID
     Route: 060
  2. SAPHRIS [Suspect]
     Dosage: 5 MG, BID
     Route: 060
  3. INSULIN [Concomitant]

REACTIONS (3)
  - Body temperature increased [Recovering/Resolving]
  - Blood glucose increased [Recovering/Resolving]
  - Insomnia [Recovering/Resolving]
